FAERS Safety Report 19374334 (Version 1)
Quarter: 2021Q2

REPORT INFORMATION
  Report Type: Report from Study
  Country: US (occurrence: US)
  Receive Date: 20210603
  Receipt Date: 20210603
  Transmission Date: 20210717
  Serious: Yes (Hospitalization)
  Sender: FDA-Public Use
  Company Number: US-BAXTER-2021BAX013924

PATIENT
  Sex: Male
  Weight: 64.1 kg

DRUGS (14)
  1. DOXIL [Suspect]
     Active Substance: DOXORUBICIN HYDROCHLORIDE
     Dosage: COURSE 4, TOTAL DOSE ADMINISTERED THIS COURSE: 130.5 MG
     Route: 065
     Dates: start: 20210301, end: 20210315
  2. METHOTREXATE SODIUM. [Suspect]
     Active Substance: METHOTREXATE SODIUM
     Dosage: 4TH COURSE; THE TOTAL DOSE ADMINISTERED THIS COURSE: 45 MG
     Route: 065
     Dates: start: 20210301, end: 20210405
  3. ONCASPAR [Suspect]
     Active Substance: PEGASPARGASE
     Indication: PRODUCT USED FOR UNKNOWN INDICATION
     Dosage: 1 TO 3RD COURSE
     Route: 065
     Dates: start: 20200921
  4. CYCLOPHOSPHAMIDE FOR INJECTION, USP [Suspect]
     Active Substance: CYCLOPHOSPHAMIDE
     Indication: PRODUCT USED FOR UNKNOWN INDICATION
     Dosage: 1 TO 4 COURSE; THE TOTAL DOSE ADMINISTERED THIS COURSE: 1740 MG
     Route: 065
     Dates: start: 20200928, end: 20210329
  5. VINCRISTINE SULFATE. [Suspect]
     Active Substance: VINCRISTINE SULFATE
     Indication: PRODUCT USED FOR UNKNOWN INDICATION
     Dosage: 1 TO 4 COURSE; THE TOTAL DOSE ADMINISTERED THIS COURSE: 8MG
     Route: 065
     Dates: start: 20200821, end: 20210412
  6. DEXAMETHASONE. [Suspect]
     Active Substance: DEXAMETHASONE
     Indication: PRODUCT USED FOR UNKNOWN INDICATION
     Dosage: 1 TO 4 COURSE; THE TOTAL DOSE ADMINISTERED THIS COURSE: 138 MG
     Route: 065
     Dates: start: 20200821, end: 20210329
  7. RITUXIMAB. [Suspect]
     Active Substance: RITUXIMAB
     Indication: PRODUCT USED FOR UNKNOWN INDICATION
     Dosage: 1 TO 3RD COURSE
     Route: 065
     Dates: start: 20200921
  8. ONCASPAR [Suspect]
     Active Substance: PEGASPARGASE
     Dosage: 4TH COURSE; THE TOTAL DOSE ADMINISTERED THIS COURSE: 6980 MG
     Route: 065
     Dates: start: 20210304, end: 20210412
  9. THIOGUANINE [Suspect]
     Active Substance: THIOGUANINE
     Dosage: 4TH COURSE; THE TOTAL DOSE ADMINISTERED THIS COURSE: 1400 MG
     Route: 065
     Dates: start: 20210329, end: 20210411
  10. DOXIL [Suspect]
     Active Substance: DOXORUBICIN HYDROCHLORIDE
     Indication: PRODUCT USED FOR UNKNOWN INDICATION
     Dosage: 1 TO 3RD COURSE
     Route: 065
     Dates: start: 20200921
  11. METHOTREXATE SODIUM. [Suspect]
     Active Substance: METHOTREXATE SODIUM
     Indication: PRODUCT USED FOR UNKNOWN INDICATION
     Dosage: 1 TO 3RD COURSE
     Route: 065
     Dates: start: 20200921
  12. CYTARABINE. [Suspect]
     Active Substance: CYTARABINE
     Indication: PRODUCT USED FOR UNKNOWN INDICATION
     Dosage: 1 TO 4 COURSE; THE TOTAL DOSE ADMINISTERED THIS COURSE: 1040 MG
     Route: 065
     Dates: start: 20200928, end: 20210409
  13. RITUXIMAB. [Suspect]
     Active Substance: RITUXIMAB
     Dosage: 4TH COURSE; THE TOTAL DOSE ADMINISTERED THIS COURSE: 1400MG
     Route: 065
     Dates: start: 20210301, end: 20210308
  14. THIOGUANINE [Suspect]
     Active Substance: THIOGUANINE
     Indication: PRODUCT USED FOR UNKNOWN INDICATION
     Dosage: 1?3RD COURSE
     Route: 065
     Dates: start: 20200921

REACTIONS (1)
  - Febrile neutropenia [Recovering/Resolving]

NARRATIVE: CASE EVENT DATE: 20210414
